FAERS Safety Report 13997259 (Version 2)
Quarter: 2017Q4

REPORT INFORMATION
  Report Type: Spontaneous
  Country: FR (occurrence: FR)
  Receive Date: 20170921
  Receipt Date: 20171017
  Transmission Date: 20180321
  Serious: Yes (Death)
  Sender: FDA-Public Use
  Company Number: FR-MERCK KGAA-2027138

PATIENT
  Sex: Female

DRUGS (1)
  1. NOVOTHYROX [Suspect]
     Active Substance: LEVOTHYROXINE SODIUM
     Indication: PRODUCT USED FOR UNKNOWN INDICATION
     Route: 065
     Dates: start: 201708

REACTIONS (3)
  - Cerebrovascular accident [Fatal]
  - Drug intolerance [None]
  - Adverse reaction [None]

NARRATIVE: CASE EVENT DATE: 20170905
